FAERS Safety Report 11122526 (Version 1)
Quarter: 2015Q2

REPORT INFORMATION
  Report Type: Spontaneous
  Country: US (occurrence: US)
  Receive Date: 20150519
  Receipt Date: 20150519
  Transmission Date: 20150821
  Serious: No
  Sender: FDA-Public Use
  Company Number: US-BAUSCH-SYM-2014-22190

PATIENT
  Age: 83 Year
  Sex: Female
  Weight: 47.22 kg

DRUGS (2)
  1. ATELVIA [Concomitant]
     Active Substance: RISEDRONATE SODIUM
     Indication: PRODUCT USED FOR UNKNOWN INDICATION
  2. MYSOLINE [Suspect]
     Active Substance: PRIMIDONE
     Indication: SEIZURE
     Dosage: 4 TABLETS IN THE MORNINGS, 2 TABLETS AT NOON, AND 3 TABLETS AT BEDTIME
     Route: 048

REACTIONS (1)
  - Hypersensitivity [Not Recovered/Not Resolved]
